FAERS Safety Report 21803270 (Version 1)
Quarter: 2023Q1

REPORT INFORMATION
  Report Type: Report from Study
  Country: CN (occurrence: CN)
  Receive Date: 20230101
  Receipt Date: 20230101
  Transmission Date: 20230418
  Serious: Yes (Other)
  Sender: FDA-Public Use
  Company Number: CN-JNJFOC-20221248667

PATIENT

DRUGS (2)
  1. RISPERDAL [Suspect]
     Active Substance: RISPERIDONE
     Indication: Product used for unknown indication
     Route: 065
  2. ACETAMINOPHEN [Suspect]
     Active Substance: ACETAMINOPHEN
     Indication: Product used for unknown indication
     Route: 065

REACTIONS (27)
  - Drug-induced liver injury [Unknown]
  - Hepatitis chronic active [Unknown]
  - Cholangitis [Unknown]
  - Cholestasis [Unknown]
  - Cholecystitis [Unknown]
  - Coma hepatic [Unknown]
  - Hepatic necrosis [Unknown]
  - Hepatocellular injury [Unknown]
  - Hepatorenal syndrome [Unknown]
  - Hepatitis [Unknown]
  - Hepatic cirrhosis [Unknown]
  - Hepatic failure [Unknown]
  - Hyperbilirubinaemia [Unknown]
  - Hyperbilirubinaemia [Unknown]
  - Hepatic function abnormal [Unknown]
  - Biliary tract disorder [Unknown]
  - Bilirubinuria [Unknown]
  - Cholelithiasis [Unknown]
  - Hepatic steatosis [Unknown]
  - Gallbladder disorder [Unknown]
  - Hepatomegaly [Unknown]
  - Hepatosplenomegaly [Unknown]
  - Jaundice [Unknown]
  - Aspartate aminotransferase increased [Unknown]
  - Alanine aminotransferase increased [Unknown]
  - Gamma-glutamyltransferase increased [Unknown]
  - Hepatic enzyme increased [Unknown]
